FAERS Safety Report 8854332 (Version 1)
Quarter: 2012Q4

REPORT INFORMATION
  Report Type: Report from Study
  Country: CI (occurrence: CI)
  Receive Date: 20121023
  Receipt Date: 20121023
  Transmission Date: 20130627
  Serious: Yes (Other)
  Sender: FDA-Public Use
  Company Number: CI-GILEAD-2012-0062538

PATIENT
  Age: 30 Year
  Sex: Female

DRUGS (3)
  1. EMTRICITABINE/TENOFOVIR DISOPROXIL FUMARATE [Suspect]
     Indication: HIV INFECTION
     Dosage: 1 DF, QD
     Route: 048
     Dates: start: 20110912
  2. ALUVIA [Concomitant]
     Indication: HIV INFECTION
     Dosage: 1 DF, BID
     Route: 048
     Dates: start: 20110912
  3. INH [Concomitant]
     Indication: PROPHYLAXIS
     Dosage: 300 mg, QD
     Route: 048
     Dates: start: 20111012, end: 20111121

REACTIONS (1)
  - Abortion spontaneous [Unknown]
